FAERS Safety Report 21233284 (Version 1)
Quarter: 2022Q3

REPORT INFORMATION
  Report Type: Spontaneous
  Country: RU (occurrence: RU)
  Receive Date: 20220819
  Receipt Date: 20220819
  Transmission Date: 20221027
  Serious: Yes (Death, Other)
  Sender: FDA-Public Use
  Company Number: RU-SLATE RUN PHARMACEUTICALS-22RU001267

PATIENT

DRUGS (2)
  1. VANCOMYCIN HYDROCHLORIDE [Suspect]
     Active Substance: VANCOMYCIN HYDROCHLORIDE
     Indication: Staphylococcal infection
     Dosage: 1 GRAM, QD
     Route: 042
     Dates: start: 2021, end: 2021
  2. CEFEPIME [Concomitant]
     Active Substance: CEFEPIME HYDROCHLORIDE
     Indication: Staphylococcal infection
     Dosage: 2 GRAM, BID
     Route: 042
     Dates: start: 2021

REACTIONS (6)
  - Death [Fatal]
  - Meningitis bacterial [Unknown]
  - Sepsis [Unknown]
  - Anuria [Unknown]
  - Acute kidney injury [Unknown]
  - Drug level increased [Unknown]

NARRATIVE: CASE EVENT DATE: 20210101
